FAERS Safety Report 6318021-0 (Version None)
Quarter: 2009Q3

REPORT INFORMATION
  Report Type: 
  Country: None (occurrence: None)
  Receive Date: 20090821
  Receipt Date: 20090811
  Transmission Date: 20100115
  Serious: Yes (Death, Other)
  Sender: FDA-Public Use
  Company Number: AT-PURDUE-DEU_2009_0005251

PATIENT
  Age: 19 Year
  Sex: Male
  Weight: 65 kg

DRUGS (5)
  1. MORPHINE [Suspect]
     Indication: DRUG DEPENDENCE
     Dosage: UNK
     Route: 042
     Dates: start: 20090503
  2. SOMNUBENE [Suspect]
  3. AMITRIPTYLINE [Suspect]
  4. NORTRIPTYLINE HCL [Suspect]
  5. MIRTAZAPINE [Concomitant]

REACTIONS (5)
  - CARDIAC ARREST [None]
  - DRUG ABUSE [None]
  - DRUG DIVERSION [None]
  - MULTIPLE DRUG OVERDOSE [None]
  - PNEUMONIA [None]
